FAERS Safety Report 10495993 (Version 1)
Quarter: 2014Q3

REPORT INFORMATION
  Report Type: Spontaneous
  Country: US (occurrence: None)
  Receive Date: 20140815
  Receipt Date: 20140815
  Transmission Date: 20150326
  Serious: Yes (Other)
  Sender: FDA-Public Use
  Company Number: ADR-2014-00548

PATIENT
  Age: 59 Year
  Sex: Female

DRUGS (1)
  1. LIORESAL [Suspect]
     Active Substance: BACLOFEN
     Indication: MUSCLE SPASTICITY

REACTIONS (5)
  - Hemiparesis [None]
  - Clonus [None]
  - Infection [None]
  - Muscle spasticity [None]
  - Tremor [None]
